FAERS Safety Report 5776034-1 (Version None)
Quarter: 2008Q2

REPORT INFORMATION
  Report Type: 
  Country: None (occurrence: None)
  Receive Date: 20080617
  Receipt Date: 20080609
  Transmission Date: 20081010
  Serious: No
  Sender: FDA-Public Use
  Company Number: JP-MERCK-0805USA06085

PATIENT
  Age: 73 Year
  Sex: Female

DRUGS (5)
  1. ZETIA [Suspect]
     Indication: HYPERCHOLESTEROLAEMIA
     Route: 048
     Dates: start: 20080324, end: 20080428
  2. CILOSTAZOL [Concomitant]
     Route: 065
  3. REBAMIPIDE [Concomitant]
     Route: 065
  4. MECOBALAMIN [Concomitant]
     Route: 065
  5. ZOLPIDEM TARTRATE [Concomitant]
     Route: 065

REACTIONS (1)
  - PYREXIA [None]
